FAERS Safety Report 4724265-1 (Version None)
Quarter: 2005Q3

REPORT INFORMATION
  Report Type: 
  Country: None (occurrence: None)
  Receive Date: 20050722
  Receipt Date: 20050711
  Transmission Date: 20060218
  Serious: Yes (Life-Threatening)
  Sender: FDA-Public Use
  Company Number: 2005099368

PATIENT
  Age: 54 Year
  Sex: Male
  Weight: 99.2 kg

DRUGS (3)
  1. SULFASALAZINE [Suspect]
     Indication: SERONEGATIVE ARTHRITIS
     Dosage: 2000 MG (1000 MG, 2 IN 1 D), ORAL
     Route: 048
     Dates: start: 20050427, end: 20050608
  2. METFORMIN HCL [Concomitant]
  3. ACETAMINOPHEN W/ CODEINE [Concomitant]

REACTIONS (2)
  - AFFECTIVE DISORDER [None]
  - SUICIDAL IDEATION [None]
